FAERS Safety Report 23565818 (Version 1)
Quarter: 2024Q1

REPORT INFORMATION
  Report Type: Spontaneous
  Country: GB (occurrence: GB)
  Receive Date: 20240226
  Receipt Date: 20240226
  Transmission Date: 20240410
  Serious: Yes (Other)
  Sender: FDA-Public Use
  Company Number: None

PATIENT
  Age: 81 Year
  Sex: Female
  Weight: 43 kg

DRUGS (5)
  1. LANSOPRAZOLE [Suspect]
     Active Substance: LANSOPRAZOLE
     Indication: Product used for unknown indication
     Dosage: DISOLVE IN WATER AND GIVE VIA NJ TUBE. HOSP LETTER JUNE 2023
     Dates: start: 20231219, end: 20240112
  2. OMEPRAZOLE [Suspect]
     Active Substance: OMEPRAZOLE
     Indication: Product used for unknown indication
     Dosage: TWO TO BE TAKEN TWICE DAILY
     Dates: start: 20240112, end: 20240124
  3. CETIRIZINE [Concomitant]
     Active Substance: CETIRIZINE HYDROCHLORIDE
     Dosage: ONE 5ML SPOONFUL TO BE TAKEN TWICE A DAY
     Dates: start: 20240111
  4. METOCLOPRAMIDE [Concomitant]
     Active Substance: METOCLOPRAMIDE
     Dosage: USE 10ML UPTO THREE TIMES A DAY AS NEEDED
     Dates: start: 20231229, end: 20240111
  5. POLYETHYLENE GLYCOLS [Concomitant]
     Active Substance: POLYETHYLENE GLYCOLS
     Dosage: TWO SACHETS TO BE TAKEN EACH DAY
     Dates: start: 20231115

REACTIONS (1)
  - Lip swelling [Recovering/Resolving]
